FAERS Safety Report 7817329-7 (Version None)
Quarter: 2011Q4

REPORT INFORMATION
  Report Type: 
  Country: None (occurrence: None)
  Receive Date: 20111017
  Receipt Date: 20111003
  Transmission Date: 20120403
  Serious: Yes (Hospitalization)
  Sender: FDA-Public Use
  Company Number: FR-CELGENEUS-056-50794-10020701

PATIENT
  Sex: Male

DRUGS (2)
  1. VIDAZA [Suspect]
     Route: 058
     Dates: start: 20091230, end: 20100105
  2. VIDAZA [Suspect]
     Route: 058
     Dates: start: 20091125, end: 20091201

REACTIONS (3)
  - FEBRILE BONE MARROW APLASIA [None]
  - ACUTE FEBRILE NEUTROPHILIC DERMATOSIS [None]
  - SKIN MASS [None]
